FAERS Safety Report 6067535-X (Version None)
Quarter: 2009Q1

REPORT INFORMATION
  Report Type: 
  Country: None (occurrence: None)
  Receive Date: 20090205
  Receipt Date: 20090119
  Transmission Date: 20090719
  Serious: Yes (Other)
  Sender: FDA-Public Use
  Company Number: PHHY2009DE03773

PATIENT
  Age: 8 Year
  Sex: Male

DRUGS (3)
  1. MYFORTIC [Suspect]
     Indication: HEART TRANSPLANT
     Dosage: UNK
     Dates: end: 20081001
  2. AZATHIOPRINE (NGX) [Suspect]
     Indication: HEART TRANSPLANT
     Dosage: UNK
     Dates: start: 20060901, end: 20061001
  3. TACROLIMUS [Concomitant]
     Indication: HEART TRANSPLANT
     Dosage: UNK
     Dates: start: 20051101

REACTIONS (3)
  - AGRANULOCYTOSIS [None]
  - GRANULOCYTE COUNT DECREASED [None]
  - LEUKOPENIA [None]
